FAERS Safety Report 22308405 (Version 1)
Quarter: 2023Q2

REPORT INFORMATION
  Report Type: Spontaneous
  Country: US (occurrence: None)
  Receive Date: 20230511
  Receipt Date: 20230511
  Transmission Date: 20230721
  Serious: No
  Sender: FDA-Public Use
  Company Number: US-ROCHE-3215414

PATIENT
  Age: 1 Year

DRUGS (3)
  1. OCREVUS [Suspect]
     Active Substance: OCRELIZUMAB
     Indication: Product used for unknown indication
     Route: 064
     Dates: start: 20201005, end: 20201106
  2. OCREVUS [Suspect]
     Active Substance: OCRELIZUMAB
     Route: 064
     Dates: start: 20210517
  3. OCREVUS [Suspect]
     Active Substance: OCRELIZUMAB
     Route: 064
     Dates: start: 20220503

REACTIONS (3)
  - Foetal exposure during pregnancy [Unknown]
  - Eating disorder [Unknown]
  - Dysstasia [Unknown]
